FAERS Safety Report 9973694 (Version 1)
Quarter: 2014Q1

REPORT INFORMATION
  Report Type: Report from Study
  Country: FR (occurrence: FR)
  Receive Date: 20140306
  Receipt Date: 20140306
  Transmission Date: 20141002
  Serious: Yes (Death)
  Sender: FDA-Public Use
  Company Number: FR-MYLANLABS-2014S1004277

PATIENT
  Age: 22 Year
  Sex: Female

DRUGS (5)
  1. CARBAMAZEPINE [Suspect]
     Indication: LYMPHOPROLIFERATIVE DISORDER
     Route: 065
  2. COTRIMOXAZOLE [Suspect]
     Indication: LYMPHOPROLIFERATIVE DISORDER
     Route: 065
  3. PREDNISONE [Suspect]
     Indication: LYMPHOPROLIFERATIVE DISORDER
     Route: 065
  4. VALACICLOVIR [Suspect]
     Indication: LYMPHOPROLIFERATIVE DISORDER
     Route: 065
  5. SIROLIMUS [Suspect]
     Indication: LYMPHOPROLIFERATIVE DISORDER
     Route: 065

REACTIONS (1)
  - Drug-induced liver injury [Fatal]
